FAERS Safety Report 11077686 (Version 1)
Quarter: 2015Q2

REPORT INFORMATION
  Report Type: Spontaneous
  Country: US (occurrence: US)
  Receive Date: 20150430
  Receipt Date: 20150430
  Transmission Date: 20150821
  Serious: Yes (Hospitalization)
  Sender: FDA-Public Use
  Company Number: US-ASTRAZENECA-2015SE37929

PATIENT
  Age: 48 Year
  Sex: Male
  Weight: 86 kg

DRUGS (4)
  1. COUMADIN [Concomitant]
     Active Substance: WARFARIN SODIUM
  2. RIMIDEX [Concomitant]
  3. DEPO-TESTOSTERONE [Concomitant]
     Active Substance: TESTOSTERONE CYPIONATE
     Dosage: 2000MG/ML .4ML INJECTION EVERY 10 DAYS
     Dates: start: 2008
  4. ARIMIDEX [Suspect]
     Active Substance: ANASTROZOLE
     Dosage: 1MG ABOUT EVERY FIVE DAYS
     Route: 048

REACTIONS (7)
  - Blood testosterone increased [Not Recovered/Not Resolved]
  - Fall [Unknown]
  - Drug ineffective [Unknown]
  - Seizure [Unknown]
  - Dizziness [Recovered/Resolved]
  - Emotional disorder [Unknown]
  - Blood testosterone decreased [Unknown]

NARRATIVE: CASE EVENT DATE: 2014
